FAERS Safety Report 12436076 (Version 2)
Quarter: 2016Q2

REPORT INFORMATION
  Report Type: Spontaneous
  Country: JP (occurrence: JP)
  Receive Date: 20160604
  Receipt Date: 20160614
  Transmission Date: 20160815
  Serious: Yes (Other)
  Sender: FDA-Public Use
  Company Number: JP-AMGEN-JPNSP2016071490

PATIENT
  Age: 6 Decade
  Sex: Male

DRUGS (8)
  1. G-LASTA [Suspect]
     Active Substance: PEGFILGRASTIM
     Dosage: 3.6 MG, UNK
     Route: 058
     Dates: start: 20160601
  2. G-LASTA [Suspect]
     Active Substance: PEGFILGRASTIM
     Indication: COLONY STIMULATING FACTOR PROPHYLAXIS
     Dosage: 3.6 MG, UNK
     Route: 058
     Dates: start: 20160510, end: 20160510
  3. TS-1 [Concomitant]
     Active Substance: GIMERACIL\OTERACIL\TEGAFUR
     Dosage: 120 MG, UNK
     Route: 048
     Dates: start: 20160530
  4. DOCETAXEL. [Concomitant]
     Active Substance: DOCETAXEL
     Indication: GASTRIC CANCER
     Dosage: 60 MG/M2, UNK
     Route: 041
     Dates: start: 20160509
  5. TS-1 [Concomitant]
     Active Substance: GIMERACIL\OTERACIL\TEGAFUR
     Indication: GASTRIC CANCER
     Dosage: 120 MG, UNK
     Route: 048
     Dates: start: 20160509
  6. CISPLATIN. [Concomitant]
     Active Substance: CISPLATIN
     Dosage: 60 MG/M2, UNK
     Route: 041
     Dates: start: 20160530
  7. DOCETAXEL. [Concomitant]
     Active Substance: DOCETAXEL
     Dosage: 60 MG/M2, UNK
     Route: 041
     Dates: start: 20160530
  8. CISPLATIN. [Concomitant]
     Active Substance: CISPLATIN
     Indication: GASTRIC CANCER
     Dosage: 60 MG/M2, UNK
     Route: 041
     Dates: start: 20160509

REACTIONS (3)
  - Neutrophil count increased [Recovered/Resolved]
  - Chemotherapy [Unknown]
  - Off label use [Unknown]

NARRATIVE: CASE EVENT DATE: 20160511
